FAERS Safety Report 4609643-3 (Version None)
Quarter: 2005Q1

REPORT INFORMATION
  Report Type: 
  Country: None (occurrence: None)
  Receive Date: 20050316
  Receipt Date: 20020125
  Transmission Date: 20050727
  Serious: Yes (Other)
  Sender: FDA-Public Use
  Company Number: 200210679GDDC

PATIENT
  Sex: Female
  Weight: 94.6 kg

DRUGS (12)
  1. TAXOTERE [Suspect]
     Indication: BREAST CANCER
     Route: 042
     Dates: start: 20020102, end: 20020102
  2. DOXORUBICIN HCL [Suspect]
     Indication: BREAST CANCER
     Route: 042
     Dates: start: 20020102, end: 20020102
  3. CYCLOPHOSPHAMIDE [Suspect]
     Indication: BREAST CANCER
     Route: 042
     Dates: start: 20020102, end: 20020102
  4. VENTOLIN [Concomitant]
     Route: 055
     Dates: start: 19810101
  5. PULMICORT [Concomitant]
     Route: 055
     Dates: start: 19810101
  6. DEXAMETHASONE [Concomitant]
     Route: 048
     Dates: start: 20011210, end: 20020123
  7. PARACETAMOL [Concomitant]
     Route: 048
     Dates: start: 20011209, end: 20011209
  8. MAXOLON [Concomitant]
     Route: 048
     Dates: start: 20011213, end: 20020106
  9. DOLASETRON [Concomitant]
     Route: 048
     Dates: start: 20011210, end: 20020104
  10. CIPROFLOXACIN [Concomitant]
     Indication: PROPHYLAXIS
     Route: 048
     Dates: start: 20011215, end: 20020115
  11. LORAZEPAM [Concomitant]
     Route: 048
     Dates: start: 20020102
  12. UNKNOWN DRUG [Concomitant]
     Route: 048
     Dates: start: 20020107, end: 20020112

REACTIONS (8)
  - BLOOD GLUCOSE INCREASED [None]
  - GAMMA-GLUTAMYLTRANSFERASE INCREASED [None]
  - HAEMATOCRIT DECREASED [None]
  - NEUTROPHIL COUNT DECREASED [None]
  - PLATELET COUNT DECREASED [None]
  - RED BLOOD CELL COUNT DECREASED [None]
  - RETINAL HAEMORRHAGE [None]
  - WHITE BLOOD CELL COUNT DECREASED [None]
